FAERS Safety Report 7086940 (Version 5)
Quarter: 2012Q4

REPORT INFORMATION
  Report Type: 
  Country: US (occurrence: US)
  Receive Date: 20090820
  Receipt Date: 20120918
  Transmission Date: 20130627
  Serious: Yes (Hospitalization)
  Sender: FDA-Public Use
  Company Number: PHHO2009US10139

PATIENT
  Age: 73 Year
  Sex: Male

DRUGS (2)
  1. ZORTRESS [Suspect]
     Indication: HEART TRANSPLANT
     Dosage: 0.75 mg, BID
     Dates: start: 20050125, end: 20090320
  2. CICLOSPORIN [Suspect]
     Indication: HEART TRANSPLANT
     Dosage: UNK

REACTIONS (4)
  - Nephropathy toxic [Recovered/Resolved]
  - Toxicity to various agents [Recovered/Resolved]
  - Renal failure chronic [Recovered/Resolved]
  - Disease progression [Recovered/Resolved]
